FAERS Safety Report 4877511-8 (Version None)
Quarter: 2006Q1

REPORT INFORMATION
  Report Type: 
  Country: None (occurrence: None)
  Receive Date: 20060111
  Receipt Date: 20051215
  Transmission Date: 20060701
  Serious: Yes (Death, Hospitalization, Other)
  Sender: FDA-Public Use
  Company Number: US-JNJFOC-20050906916

PATIENT
  Sex: Female
  Weight: 65.32 kg

DRUGS (84)
  1. REMICADE [Suspect]
     Dosage: Q 6-8 WEEKS.
     Route: 042
  2. REMICADE [Suspect]
     Route: 042
  3. REMICADE [Suspect]
     Dosage: Q 6-8 WEEKS.
     Route: 042
  4. REMICADE [Suspect]
     Dosage: Q 6-8 WEEKS.
     Route: 042
  5. REMICADE [Suspect]
     Dosage: Q 6-8 WEEKS.
     Route: 042
  6. REMICADE [Suspect]
     Dosage: Q 6-8 WEEKS.
     Route: 042
  7. REMICADE [Suspect]
     Dosage: Q 6-8 WEEKS.
     Route: 042
  8. REMICADE [Suspect]
     Dosage: Q 6-8 WEEKS.
     Route: 042
  9. REMICADE [Suspect]
     Dosage: Q 6-8 WEEKS.
     Route: 042
  10. REMICADE [Suspect]
     Dosage: Q 6-8 WEEKS.
     Route: 042
  11. REMICADE [Suspect]
     Route: 042
  12. REMICADE [Suspect]
     Route: 042
  13. REMICADE [Suspect]
     Route: 042
  14. REMICADE [Suspect]
     Route: 042
  15. REMICADE [Suspect]
     Route: 042
  16. REMICADE [Suspect]
     Route: 042
  17. REMICADE [Suspect]
     Route: 042
  18. REMICADE [Suspect]
     Route: 042
  19. REMICADE [Suspect]
     Route: 042
  20. REMICADE [Suspect]
     Route: 042
  21. REMICADE [Suspect]
     Route: 042
  22. REMICADE [Suspect]
     Route: 042
  23. REMICADE [Suspect]
     Route: 042
  24. REMICADE [Suspect]
     Route: 042
  25. REMICADE [Suspect]
     Route: 042
  26. REMICADE [Suspect]
     Route: 042
  27. REMICADE [Suspect]
     Route: 042
  28. REMICADE [Suspect]
     Route: 042
  29. REMICADE [Suspect]
     Route: 042
  30. REMICADE [Suspect]
     Indication: RHEUMATOID ARTHRITIS
     Route: 042
  31. HYDROMORPHONE HCL [Concomitant]
     Route: 048
  32. PROTONIX [Concomitant]
  33. IMURAN [Concomitant]
  34. LEVOTHROID [Concomitant]
  35. FOLIC ACID [Concomitant]
  36. KLONOPIN [Concomitant]
     Dosage: 2-4 PER DAY
     Route: 048
  37. COMPAZINE [Concomitant]
     Route: 048
  38. DOLOPHINE [Concomitant]
     Route: 048
  39. DOLOPHINE [Concomitant]
     Route: 048
  40. DOLOPHINE [Concomitant]
     Route: 048
  41. DOLOPHINE [Concomitant]
     Route: 048
  42. MIRAPEX [Concomitant]
     Route: 048
  43. DURAGESIC-100 [Concomitant]
     Route: 062
  44. ZOLOFT [Concomitant]
     Route: 048
  45. FOSAMAX [Concomitant]
     Route: 048
  46. TRAZODONE [Concomitant]
     Route: 048
  47. TRAZODONE [Concomitant]
     Route: 048
  48. CALCIUM GLUCONATE [Concomitant]
  49. MULTI-VITAMIN [Concomitant]
  50. MULTI-VITAMIN [Concomitant]
  51. MULTI-VITAMIN [Concomitant]
  52. MULTI-VITAMIN [Concomitant]
  53. MULTI-VITAMIN [Concomitant]
  54. MULTI-VITAMIN [Concomitant]
  55. MULTI-VITAMIN [Concomitant]
  56. MULTI-VITAMIN [Concomitant]
  57. STOOL SOFTENER [Concomitant]
  58. VITAMIN D [Concomitant]
     Route: 048
  59. DULCOLAX [Concomitant]
  60. PREMARIN [Concomitant]
  61. PROVERA [Concomitant]
  62. SORBITOL [Concomitant]
  63. PRILOSEC [Concomitant]
  64. ARAVA [Concomitant]
  65. ABILIFY [Concomitant]
  66. METROLOTION [Concomitant]
  67. GENGRAF [Concomitant]
  68. LACTULOSE [Concomitant]
     Dosage: 2 TSP UPTO 4 X DAILY
  69. NASAREL [Concomitant]
     Route: 045
  70. MOTRIN [Concomitant]
  71. DARVOCET-N 100 [Concomitant]
  72. DARVOCET-N 100 [Concomitant]
     Indication: PAIN
  73. ZYPREXA [Concomitant]
  74. LOMOTIL [Concomitant]
  75. LOMOTIL [Concomitant]
  76. SEROQUEL [Concomitant]
  77. DOXYCYCLINE [Concomitant]
  78. PAMELOR [Concomitant]
  79. LAMICTAL [Concomitant]
  80. METROGEL [Concomitant]
     Dosage: 0.75%
     Route: 061
  81. PREDNISONE [Concomitant]
  82. DESONIDE [Concomitant]
  83. INDERAL [Concomitant]
  84. ATARAX [Concomitant]

REACTIONS (47)
  - ABDOMINAL PAIN UPPER [None]
  - ANAEMIA [None]
  - ASTHENIA [None]
  - BLOOD POTASSIUM DECREASED [None]
  - BRONCHITIS [None]
  - CELLULITIS [None]
  - CERVICAL DYSPLASIA [None]
  - CERVICITIS [None]
  - CHEST PAIN [None]
  - CLOSTRIDIAL INFECTION [None]
  - CONDITION AGGRAVATED [None]
  - CONFUSIONAL STATE [None]
  - CONJUNCTIVITIS [None]
  - DEPRESSION [None]
  - DIARRHOEA [None]
  - DIZZINESS [None]
  - FALL [None]
  - FATIGUE [None]
  - FEBRILE NEUTROPENIA [None]
  - FUNGAL RASH [None]
  - GASTRITIS [None]
  - HALLUCINATION [None]
  - INSOMNIA [None]
  - LYMPHADENITIS [None]
  - MUSCLE STRAIN [None]
  - NASOPHARYNGITIS [None]
  - NAUSEA [None]
  - NON-HODGKIN'S LYMPHOMA STAGE IV [None]
  - ODYNOPHAGIA [None]
  - ONYCHOCLASIS [None]
  - ORAL CANDIDIASIS [None]
  - PNEUMONIA [None]
  - PYREXIA [None]
  - RESPIRATORY FAILURE [None]
  - RHINITIS [None]
  - SIALOADENITIS [None]
  - SKIN LACERATION [None]
  - STRESS FRACTURE [None]
  - THERAPEUTIC RESPONSE DECREASED [None]
  - THROMBOTIC THROMBOCYTOPENIC PURPURA [None]
  - TOOTH INFECTION [None]
  - TRANSFUSION REACTION [None]
  - URINARY TRACT INFECTION [None]
  - UROSEPSIS [None]
  - VOMITING [None]
  - WEIGHT DECREASED [None]
  - WRIST FRACTURE [None]
